FAERS Safety Report 7017760-6 (Version None)
Quarter: 2010Q3

REPORT INFORMATION
  Report Type: 
  Country: None (occurrence: None)
  Receive Date: 20100909
  Receipt Date: 20100616
  Transmission Date: 20110219
  Serious: No
  Sender: FDA-Public Use
  Company Number: 2010SP034086

PATIENT
  Age: 41 Year
  Sex: Male

DRUGS (6)
  1. SAPHRIS [Suspect]
     Indication: SCHIZOPHRENIA
     Dosage: 5 MG;BID;SL
     Route: 060
     Dates: start: 20091101
  2. PROZAC (CON.) [Concomitant]
  3. PROPANOLOL (CON.) [Concomitant]
  4. FENOFIBRATE (CON.) [Concomitant]
  5. PROVOSTATIN (PRAVASTATIN) (CON.) [Concomitant]
  6. THYROXINE (CON.) [Concomitant]

REACTIONS (2)
  - FATIGUE [None]
  - FEELING ABNORMAL [None]
